FAERS Safety Report 12500415 (Version 6)
Quarter: 2017Q1

REPORT INFORMATION
  Report Type: Spontaneous
  Country: US (occurrence: US)
  Receive Date: 20160627
  Receipt Date: 20170130
  Transmission Date: 20170428
  Serious: Yes (Hospitalization, Other)
  Sender: FDA-Public Use
  Company Number: US-PFIZER INC-2016309553

PATIENT
  Age: 60 Year
  Sex: Female

DRUGS (6)
  1. AMARYL [Concomitant]
     Active Substance: GLIMEPIRIDE
     Dosage: UNK
  2. AROMASIN [Suspect]
     Active Substance: EXEMESTANE
     Indication: BREAST CANCER
     Dosage: 25 MG, 1X/DAY
     Route: 048
     Dates: start: 20160425, end: 20160619
  3. LISINOPRIL AND HYDROCHLOROTHIAZIDE [Concomitant]
     Active Substance: HYDROCHLOROTHIAZIDE\LISINOPRIL
     Dosage: UNK
  4. LANTUS [Concomitant]
     Active Substance: INSULIN GLARGINE
     Dosage: UNK
  5. CALCIUM [Concomitant]
     Active Substance: CALCIUM
     Dosage: UNK UNK, AS NEEDED
  6. VITAMIN D /00107901/ [Concomitant]
     Active Substance: ERGOCALCIFEROL
     Dosage: UNK UNK, AS NEEDED

REACTIONS (18)
  - Glucose urine present [Recovered/Resolved]
  - Pain in extremity [Not Recovered/Not Resolved]
  - Hypoacusis [Recovered/Resolved]
  - Bladder discomfort [Recovered/Resolved]
  - White blood cells urine positive [Recovered/Resolved]
  - Joint lock [Not Recovered/Not Resolved]
  - Urethral disorder [Recovered/Resolved]
  - Bladder irritation [Recovered/Resolved]
  - Pollakiuria [Recovered/Resolved]
  - Renal disorder [Recovered/Resolved]
  - Bladder spasm [Recovered/Resolved]
  - Arthralgia [Not Recovered/Not Resolved]
  - Peripheral swelling [Not Recovered/Not Resolved]
  - Micturition urgency [Recovered/Resolved]
  - Bladder pain [Recovered/Resolved]
  - Hot flush [Recovered/Resolved]
  - Urinary tract infection [Recovered/Resolved]
  - Kidney infection [Recovered/Resolved]

NARRATIVE: CASE EVENT DATE: 201604
